FAERS Safety Report 6629923-X (Version None)
Quarter: 2010Q1

REPORT INFORMATION
  Report Type: 
  Country: None (occurrence: None)
  Receive Date: 20100311
  Receipt Date: 20090710
  Transmission Date: 20100710
  Serious: No
  Sender: FDA-Public Use
  Company Number: US-BIOGENIDEC-2009BI021279

PATIENT
  Age: 43 Year
  Sex: Female

DRUGS (3)
  1. AVONEX [Suspect]
     Indication: MULTIPLE SCLEROSIS
     Route: 030
     Dates: start: 20030101, end: 20040101
  2. AVONEX [Suspect]
     Route: 030
     Dates: start: 20090101
  3. THYROID MEDICATION (NOS) [Concomitant]
     Indication: THYROID DISORDER

REACTIONS (10)
  - ALOPECIA [None]
  - EYE PAIN [None]
  - FATIGUE [None]
  - HYPOAESTHESIA [None]
  - INFLUENZA LIKE ILLNESS [None]
  - MIGRAINE [None]
  - PARAESTHESIA [None]
  - VISUAL IMPAIRMENT [None]
  - VITAMIN D DEFICIENCY [None]
  - WEIGHT DECREASED [None]
